FAERS Safety Report 9494040 (Version 1)
Quarter: 2013Q3

REPORT INFORMATION
  Report Type: Spontaneous
  Country: US (occurrence: None)
  Receive Date: 20130829
  Receipt Date: 20130829
  Transmission Date: 20140515
  Serious: No
  Sender: FDA-Public Use
  Company Number: None

PATIENT
  Age: 31 Year
  Sex: Male
  Weight: 109.32 kg

DRUGS (1)
  1. KETAMINE [Suspect]
     Route: 042
     Dates: start: 20130816, end: 20130816

REACTIONS (2)
  - Tinnitus [None]
  - Nausea [None]
